FAERS Safety Report 22328568 (Version 1)
Quarter: 2023Q2

REPORT INFORMATION
  Report Type: Spontaneous
  Country: US (occurrence: US)
  Receive Date: 20230517
  Receipt Date: 20230517
  Transmission Date: 20230721
  Serious: No
  Sender: FDA-Public Use
  Company Number: US-RADIUS HEALTH INC.-2023US000186

PATIENT
  Sex: Female

DRUGS (1)
  1. TYMLOS [Suspect]
     Active Substance: ABALOPARATIDE
     Indication: Senile osteoporosis
     Dosage: 80 MCG, QD
     Route: 058

REACTIONS (8)
  - Chest discomfort [Unknown]
  - Anxiety [Unknown]
  - Muscular weakness [Unknown]
  - Abdominal discomfort [Unknown]
  - Respiration abnormal [Unknown]
  - Rash macular [Unknown]
  - Palpitations [Unknown]
  - Fatigue [Unknown]
